FAERS Safety Report 4512136-5 (Version None)
Quarter: 2004Q4

REPORT INFORMATION
  Report Type: 
  Country: None (occurrence: None)
  Receive Date: 20041129
  Receipt Date: 20040115
  Transmission Date: 20050328
  Serious: No
  Sender: FDA-Public Use
  Company Number: US-GLAXOSMITHKLINE-A0493494A

PATIENT
  Age: 74 Year
  Sex: Male

DRUGS (4)
  1. LANOXIN [Suspect]
     Indication: ARRHYTHMIA
     Dosage: .125 PER DAY
     Route: 048
     Dates: start: 20030801
  2. LOPRESSOR [Concomitant]
  3. EYE DROPS [Concomitant]
     Indication: GLAUCOMA
     Route: 047
  4. DYAZIDE [Concomitant]

REACTIONS (2)
  - DECREASED APPETITE [None]
  - WEIGHT DECREASED [None]
